FAERS Safety Report 7319088-3 (Version None)
Quarter: 2011Q1

REPORT INFORMATION
  Report Type: 
  Country: None (occurrence: None)
  Receive Date: 20110228
  Receipt Date: 20101021
  Transmission Date: 20110831
  Serious: Yes (Other)
  Sender: FDA-Public Use
  Company Number: US-BAYER-201016093NA

PATIENT
  Sex: Female
  Weight: 52 kg

DRUGS (6)
  1. YAZ [Suspect]
     Indication: PRODUCT USED FOR UNKNOWN INDICATION
     Route: 048
  2. ULTRAM [Concomitant]
  3. PENICILLIN V [Concomitant]
  4. YASMIN [Suspect]
     Indication: ACNE
     Dates: start: 20050501, end: 20090515
  5. OCELLA [Suspect]
     Indication: ACNE
     Dates: start: 20050501, end: 20090515
  6. ZANTAC [Concomitant]

REACTIONS (3)
  - ABDOMINAL PAIN UPPER [None]
  - ABDOMINAL PAIN [None]
  - CHOLELITHIASIS [None]
